FAERS Safety Report 9585492 (Version 1)
Quarter: 2013Q4

REPORT INFORMATION
  Report Type: Spontaneous
  Country: NL (occurrence: NL)
  Receive Date: 20131003
  Receipt Date: 20131003
  Transmission Date: 20140711
  Serious: Yes (Death, Hospitalization)
  Sender: FDA-Public Use
  Company Number: NL-AMGEN-NLDSP2013069244

PATIENT
  Age: 84 Year
  Sex: Male

DRUGS (2)
  1. XGEVA [Suspect]
     Indication: PRODUCT USED FOR UNKNOWN INDICATION
     Dosage: 120 MG, Q4WK
     Route: 065
     Dates: start: 20130819
  2. FIRMAGON                           /01764801/ [Concomitant]
     Dosage: 80 MG, Q4WK

REACTIONS (2)
  - Lung neoplasm malignant [Fatal]
  - Hospitalisation [Unknown]
